FAERS Safety Report 23044752 (Version 1)
Quarter: 2023Q4

REPORT INFORMATION
  Report Type: Spontaneous
  Country: US (occurrence: US)
  Receive Date: 20231009
  Receipt Date: 20231009
  Transmission Date: 20240110
  Serious: No
  Sender: FDA-Public Use
  Company Number: US-JNJFOC-20231004227

PATIENT
  Age: 73 Year
  Sex: Male

DRUGS (21)
  1. TYLENOL [Suspect]
     Active Substance: ACETAMINOPHEN
     Indication: Premedication
     Route: 065
     Dates: start: 2023
  2. CETIRIZINE HYDROCHLORIDE [Suspect]
     Active Substance: CETIRIZINE HYDROCHLORIDE
     Indication: Premedication
     Route: 065
     Dates: start: 2023
  3. ALLEGRA [Concomitant]
     Active Substance: FEXOFENADINE HYDROCHLORIDE
     Indication: Premedication
     Route: 065
     Dates: start: 2023
  4. SOLU-MEDROL [Concomitant]
     Active Substance: METHYLPREDNISOLONE SODIUM SUCCINATE
     Indication: Premedication
     Route: 065
     Dates: start: 2023
  5. NAPROXEN [Concomitant]
     Active Substance: NAPROXEN
     Indication: Premedication
     Route: 065
     Dates: start: 2023
  6. ALLOPURINOL [Concomitant]
     Active Substance: ALLOPURINOL
     Indication: Premedication
     Route: 065
     Dates: start: 2023
  7. KRYSTEXXA [Concomitant]
     Active Substance: PEGLOTICASE
     Indication: Gouty tophus
     Dosage: 14TH INFUSION
     Route: 042
     Dates: start: 20230822
  8. KRYSTEXXA [Concomitant]
     Active Substance: PEGLOTICASE
     Route: 042
     Dates: start: 20230214
  9. KRYSTEXXA [Concomitant]
     Active Substance: PEGLOTICASE
     Route: 042
     Dates: start: 20230301
  10. KRYSTEXXA [Concomitant]
     Active Substance: PEGLOTICASE
     Route: 042
     Dates: start: 20230314
  11. KRYSTEXXA [Concomitant]
     Active Substance: PEGLOTICASE
     Route: 042
     Dates: start: 20230328
  12. KRYSTEXXA [Concomitant]
     Active Substance: PEGLOTICASE
     Route: 042
     Dates: start: 20230411
  13. KRYSTEXXA [Concomitant]
     Active Substance: PEGLOTICASE
     Route: 042
     Dates: start: 20230425
  14. KRYSTEXXA [Concomitant]
     Active Substance: PEGLOTICASE
     Route: 042
     Dates: start: 20230509
  15. KRYSTEXXA [Concomitant]
     Active Substance: PEGLOTICASE
     Route: 042
     Dates: start: 20230523
  16. KRYSTEXXA [Concomitant]
     Active Substance: PEGLOTICASE
     Route: 042
     Dates: start: 20230606
  17. KRYSTEXXA [Concomitant]
     Active Substance: PEGLOTICASE
     Route: 042
     Dates: start: 20230627
  18. KRYSTEXXA [Concomitant]
     Active Substance: PEGLOTICASE
     Route: 042
     Dates: start: 20230713
  19. KRYSTEXXA [Concomitant]
     Active Substance: PEGLOTICASE
     Route: 042
     Dates: start: 20230727
  20. KRYSTEXXA [Concomitant]
     Active Substance: PEGLOTICASE
     Route: 042
     Dates: start: 20230808
  21. BENADRYL [Concomitant]
     Active Substance: DIPHENHYDRAMINE HYDROCHLORIDE
     Indication: Product used for unknown indication
     Route: 065
     Dates: start: 202302

REACTIONS (1)
  - Off label use [Unknown]

NARRATIVE: CASE EVENT DATE: 20230101
